FAERS Safety Report 19569357 (Version 1)
Quarter: 2021Q3

REPORT INFORMATION
  Report Type: Spontaneous
  Country: CN (occurrence: CN)
  Receive Date: 20210716
  Receipt Date: 20210716
  Transmission Date: 20211014
  Serious: Yes (Other)
  Sender: FDA-Public Use
  Company Number: CN-ELI_LILLY_AND_COMPANY-CN202107002195

PATIENT
  Age: 64 Year
  Sex: Male

DRUGS (3)
  1. RED BLOOD CELLS [Concomitant]
     Active Substance: HUMAN RED BLOOD CELL
     Dosage: UNK, UNKNOWN
  2. ALIMTA [Suspect]
     Active Substance: PEMETREXED DISODIUM
     Indication: LUNG NEOPLASM MALIGNANT
     Dosage: 1 G, DAILY
     Route: 041
     Dates: start: 20210609, end: 20210610
  3. AQUPLA [Suspect]
     Active Substance: NEDAPLATIN
     Indication: LUNG NEOPLASM MALIGNANT
     Dosage: 180 MG, DAILY
     Route: 041
     Dates: start: 20210609, end: 20210610

REACTIONS (5)
  - Gingival bleeding [Recovered/Resolved]
  - Off label use [Unknown]
  - Myelosuppression [Recovering/Resolving]
  - Mucosal haemorrhage [Recovered/Resolved]
  - Skin haemorrhage [Recovered/Resolved]

NARRATIVE: CASE EVENT DATE: 20210623
